FAERS Safety Report 18318469 (Version 1)
Quarter: 2020Q3

REPORT INFORMATION
  Report Type: Spontaneous
  Country: US (occurrence: US)
  Receive Date: 20200927
  Receipt Date: 20200927
  Transmission Date: 20201103
  Serious: Yes (Hospitalization, Disabling, Other)
  Sender: FDA-Public Use
  Company Number: None

PATIENT
  Age: 38 Year
  Sex: Female
  Weight: 49.9 kg

DRUGS (1)
  1. MIRENA [Suspect]
     Active Substance: LEVONORGESTREL
     Dates: start: 20081201, end: 20090301

REACTIONS (6)
  - Head discomfort [None]
  - Visual impairment [None]
  - Dizziness [None]
  - Multiple sclerosis [None]
  - Device dislocation [None]
  - Nausea [None]

NARRATIVE: CASE EVENT DATE: 20090101
